FAERS Safety Report 6483056-4 (Version None)
Quarter: 2009Q4

REPORT INFORMATION
  Report Type: 
  Country: None (occurrence: None)
  Receive Date: 20091123
  Receipt Date: 20090817
  Transmission Date: 20100525
  Serious: No
  Sender: FDA-Public Use
  Company Number: 8050565

PATIENT
  Age: 29 Year
  Sex: Female
  Weight: 61.6 kg

DRUGS (6)
  1. CIMZIA [Suspect]
     Indication: CROHN'S DISEASE
     Dosage: 400 MG SC
     Route: 058
     Dates: start: 20090807
  2. AUGMENTIN [Concomitant]
  3. CIPRO [Concomitant]
  4. ENTOCORT EC [Concomitant]
  5. CITALOPRAM HYDROBROMIDE [Concomitant]
  6. AMBIEN [Concomitant]

REACTIONS (1)
  - ARTHRALGIA [None]
